FAERS Safety Report 6609253-2 (Version None)
Quarter: 2010Q1

REPORT INFORMATION
  Report Type: 
  Country: None (occurrence: None)
  Receive Date: 20100224
  Receipt Date: 20100203
  Transmission Date: 20100710
  Serious: Yes (Other)
  Sender: FDA-Public Use
  Company Number: PAS2010-001

PATIENT
  Sex: Female

DRUGS (1)
  1. BANICIDE PLUS LIQUID CHEMICAL STERILANT [Suspect]
     Indication: INFECTION PROPHYLAXIS
     Dates: start: 20100202

REACTIONS (2)
  - MUCOSAL INFLAMMATION [None]
  - RESPIRATORY DISORDER [None]
